FAERS Safety Report 12929184 (Version 2)
Quarter: 2016Q4

REPORT INFORMATION
  Report Type: Spontaneous
  Country: US (occurrence: US)
  Receive Date: 20161110
  Receipt Date: 20161111
  Transmission Date: 20170207
  Serious: No
  Sender: FDA-Public Use
  Company Number: US-PFIZER INC-2016517726

PATIENT
  Age: 53 Year
  Sex: Female
  Weight: 53.52 kg

DRUGS (1)
  1. GABAPENTIN. [Suspect]
     Active Substance: GABAPENTIN
     Dosage: UNK

REACTIONS (3)
  - Feeling abnormal [Unknown]
  - Hypersensitivity [Unknown]
  - Pruritus [Unknown]
